FAERS Safety Report 9877469 (Version 1)
Quarter: 2014Q1

REPORT INFORMATION
  Report Type: Other
  Country: US (occurrence: US)
  Receive Date: 20140206
  Receipt Date: 20140206
  Transmission Date: 20141002
  Serious: No
  Sender: FDA-Public Use
  Company Number: US-ACORDA-ACO_38811_2013

PATIENT
  Age: 58 Year
  Sex: Female

DRUGS (2)
  1. AMPYRA [Suspect]
     Indication: PRODUCT USED FOR UNKNOWN INDICATION
     Dosage: 10 MG, BID
     Route: 065
     Dates: start: 201309, end: 20130930
  2. COPAXONE [Concomitant]
     Indication: PRODUCT USED FOR UNKNOWN INDICATION
     Dosage: 20 MG, UNK

REACTIONS (5)
  - Hypokinesia [Unknown]
  - Abdominal pain upper [Unknown]
  - Muscle spasms [Unknown]
  - Back pain [Unknown]
  - Nausea [Unknown]
